FAERS Safety Report 7069711-6 (Version None)
Quarter: 2010Q4

REPORT INFORMATION
  Report Type: 
  Country: None (occurrence: None)
  Receive Date: 20101028
  Receipt Date: 20100430
  Transmission Date: 20110411
  Serious: Yes (Hospitalization)
  Sender: FDA-Public Use
  Company Number: US-WYE-H14996610

PATIENT
  Age: 71 Year
  Sex: Male

DRUGS (7)
  1. AMIODARONE [Suspect]
     Indication: VENTRICULAR TACHYCARDIA
     Route: 048
  2. AMIODARONE [Suspect]
     Indication: SUPRAVENTRICULAR TACHYCARDIA
  3. AMIODARONE [Suspect]
     Indication: ATRIAL FIBRILLATION
  4. TACROLIMUS [Concomitant]
  5. AMIODARONE [Suspect]
     Dosage: INITIAL BOLUS OF 150 MG, FOLLOWED BY CONTINUOUS INFUSION OF 1MG/MIN X 6 HRS THAN 0.5 MG/MIN X 18 HRS
     Route: 042
  6. AMIODARONE [Suspect]
  7. AMIODARONE [Suspect]

REACTIONS (2)
  - ELECTROCARDIOGRAM QT PROLONGED [None]
  - TORSADE DE POINTES [None]
